FAERS Safety Report 7343609-8 (Version None)
Quarter: 2011Q1

REPORT INFORMATION
  Report Type: 
  Country: None (occurrence: None)
  Receive Date: 20110310
  Receipt Date: 20100713
  Transmission Date: 20110831
  Serious: No
  Sender: FDA-Public Use
  Company Number: A0870124A

PATIENT
  Age: 40 Year
  Sex: Female

DRUGS (3)
  1. NICOTINE POLACRILEX [Suspect]
     Dates: start: 20100602
  2. NICORETTE [Suspect]
     Dates: start: 20100602
  3. NICORETTE [Suspect]
     Dates: start: 20100602

REACTIONS (3)
  - FEELING ABNORMAL [None]
  - ILL-DEFINED DISORDER [None]
  - DRUG ADMINISTRATION ERROR [None]
